FAERS Safety Report 5224561-8 (Version None)
Quarter: 2007Q1

REPORT INFORMATION
  Report Type: 
  Country: None (occurrence: None)
  Receive Date: 20070126
  Receipt Date: 20070116
  Transmission Date: 20070707
  Serious: No
  Sender: FDA-Public Use
  Company Number: 200610IM000585

PATIENT
  Age: 61 Year
  Sex: Female
  Weight: 77.5651 kg

DRUGS (10)
  1. ACTIMMUNE [Suspect]
     Indication: IDIOPATHIC PULMONARY FIBROSIS
     Dosage: 200 UG, TIW, SUBCUTANEOUS
     Route: 058
     Dates: start: 20021101
  2. CLONAZEPAM [Concomitant]
  3. NABUMETONE [Concomitant]
  4. ESTROPIPATE [Concomitant]
  5. LEVOTHYROXINE SODIUM [Concomitant]
  6. BUPROPION HCL [Concomitant]
  7. TRAZODONE HCL [Concomitant]
  8. WELLBUTRIN [Concomitant]
  9. CYMBALTA [Concomitant]
  10. ASPIRIN [Concomitant]

REACTIONS (6)
  - BRONCHITIS [None]
  - CARDIOLIPIN ANTIBODY POSITIVE [None]
  - ERYTHEMA NODOSUM [None]
  - LEUKOPENIA [None]
  - NEUTROPENIA [None]
  - THROMBOCYTOPENIA [None]
